FAERS Safety Report 22139741 (Version 7)
Quarter: 2024Q4

REPORT INFORMATION
  Report Type: Spontaneous
  Country: PT (occurrence: PT)
  Receive Date: 20230327
  Receipt Date: 20241115
  Transmission Date: 20250115
  Serious: Yes (Life-Threatening, Hospitalization, Other)
  Sender: ORGANON
  Company Number: PT-GLAXOSMITHKLINE-PT2023EME036233

PATIENT
  Age: 42 Year
  Sex: Female
  Weight: 85 kg

DRUGS (8)
  1. LOSARTAN POTASSIUM [Suspect]
     Active Substance: LOSARTAN POTASSIUM
     Dosage: 1.4 G, 1 TOTAL
     Route: 048
  2. AMLODIPINE [Suspect]
     Active Substance: AMLODIPINE BESYLATE
     Dosage: 140 MG, 1 TOTAL
     Route: 048
  3. CARVEDILOL [Suspect]
     Active Substance: CARVEDILOL
     Dosage: 250 MG, 1 TOTAL
     Route: 048
  4. ETODOLAC [Suspect]
     Active Substance: ETODOLAC
     Dosage: 3 G, 1 TOTAL
     Route: 048
  5. ACEMETACIN [Suspect]
     Active Substance: ACEMETACIN
     Dosage: 900 MG, 1 TOTAL
     Route: 048
  6. AMOXICILLIN [Suspect]
     Active Substance: AMOXICILLIN
     Dosage: 8 G
  7. CLAVULANIC ACID [Suspect]
     Active Substance: CLAVULANIC ACID
     Dosage: 1.6 MG
  8. AMOXICILLIN\CLAVULANIC ACID [Suspect]
     Active Substance: AMOXICILLIN\CLAVULANIC ACID
     Dosage: AMOXICILLIN (8 G) AND CLAVULANIC ACID 2MG ORAL
     Route: 048

REACTIONS (3)
  - Toxicity to various agents [Recovered/Resolved]
  - Intentional overdose [Recovered/Resolved]
  - Hypotension [Recovered/Resolved]
